FAERS Safety Report 8424907-3 (Version None)
Quarter: 2012Q2

REPORT INFORMATION
  Report Type: 
  Country: None (occurrence: None)
  Receive Date: 20120611
  Receipt Date: 20120605
  Transmission Date: 20120825
  Serious: No
  Sender: FDA-Public Use
  Company Number: US-PFIZER INC-2012135477

PATIENT
  Sex: Male
  Weight: 90.703 kg

DRUGS (2)
  1. PROCARDIA XL [Suspect]
     Indication: HYPERTENSION
     Dosage: 60 MG, DAILY
  2. LASIX [Concomitant]
     Indication: FLUID RETENTION
     Dosage: 40 MG, DAILY

REACTIONS (1)
  - ARTHRITIS [None]
